FAERS Safety Report 14794232 (Version 1)
Quarter: 2018Q2

REPORT INFORMATION
  Report Type: Report from Study
  Country: DE (occurrence: DE)
  Receive Date: 20180423
  Receipt Date: 20180423
  Transmission Date: 20180711
  Serious: Yes (Other)
  Sender: FDA-Public Use
  Company Number: PHHY2018DE065381

PATIENT
  Sex: Male
  Weight: 115 kg

DRUGS (24)
  1. COSENTYX [Suspect]
     Active Substance: SECUKINUMAB
     Dosage: 150 MG, PER APPLICATION
     Route: 065
     Dates: start: 20170928
  2. COSENTYX [Suspect]
     Active Substance: SECUKINUMAB
     Dosage: 150 MG, PER APPLICATION
     Route: 065
     Dates: start: 20170831
  3. COSENTYX [Suspect]
     Active Substance: SECUKINUMAB
     Dosage: 150 MG, PER APPLICATION
     Route: 065
     Dates: start: 20171221
  4. METHOTREXATE. [Concomitant]
     Active Substance: METHOTREXATE
     Dosage: 20 MG, QW
     Route: 058
     Dates: start: 201801, end: 201802
  5. METHOTREXATE. [Concomitant]
     Active Substance: METHOTREXATE
     Dosage: 20 MG, QW
     Route: 058
     Dates: start: 20180331
  6. COSENTYX [Suspect]
     Active Substance: SECUKINUMAB
     Dosage: 150 MG, PER APPLICATION
     Route: 065
     Dates: start: 20170309
  7. COSENTYX [Suspect]
     Active Substance: SECUKINUMAB
     Dosage: 150 MG, PER APPLICATION
     Route: 065
     Dates: start: 20171026
  8. IBUPROFEN. [Concomitant]
     Active Substance: IBUPROFEN
     Dosage: UNK UNK, TID
     Route: 048
     Dates: start: 201704
  9. TRAMADOL HYDROCHLORIDE. [Concomitant]
     Active Substance: TRAMADOL HYDROCHLORIDE
     Indication: SPINAL DISORDER
     Dosage: 30 DRP, PRN
     Route: 048
     Dates: start: 201402, end: 201704
  10. COSENTYX [Suspect]
     Active Substance: SECUKINUMAB
     Dosage: 150 MG, PER APPLICATION
     Route: 065
     Dates: start: 20170803
  11. FOLIC ACID. [Concomitant]
     Active Substance: FOLIC ACID
     Indication: PROPHYLAXIS
     Dosage: UNK UNK, QW
     Route: 048
     Dates: start: 20160331
  12. COSENTYX [Suspect]
     Active Substance: SECUKINUMAB
     Indication: PSORIATIC ARTHROPATHY
     Dosage: 150 MG, ONCE/SINGLE (PER APPLICATION)
     Route: 065
     Dates: start: 20170216
  13. COSENTYX [Suspect]
     Active Substance: SECUKINUMAB
     Dosage: 150 MG, PER APPLICATION
     Route: 065
     Dates: start: 20170316
  14. COSENTYX [Suspect]
     Active Substance: SECUKINUMAB
     Dosage: 150 MG, PER APPLICATION
     Route: 065
     Dates: start: 20171123
  15. METHOTREXATE. [Concomitant]
     Active Substance: METHOTREXATE
     Indication: PSORIATIC ARTHROPATHY
     Dosage: 20 MG, QW
     Route: 058
     Dates: start: 20170619, end: 201712
  16. COSENTYX [Suspect]
     Active Substance: SECUKINUMAB
     Dosage: 150 MG, PER APPLICATION
     Route: 065
     Dates: start: 20170608
  17. COSENTYX [Suspect]
     Active Substance: SECUKINUMAB
     Dosage: 150 MG, PER APPLICATION
     Route: 065
     Dates: start: 20180111
  18. AERIUS [Concomitant]
     Active Substance: DESLORATADINE
     Indication: HYPERSENSITIVITY
     Dosage: 2 DF, BID
     Route: 048
     Dates: start: 20170215, end: 20170605
  19. COSENTYX [Suspect]
     Active Substance: SECUKINUMAB
     Dosage: 150 MG, PER APPLICATION
     Route: 065
     Dates: start: 20170223
  20. COSENTYX [Suspect]
     Active Substance: SECUKINUMAB
     Dosage: 150 MG, PER APPLICATION
     Route: 065
     Dates: start: 20170302
  21. COSENTYX [Suspect]
     Active Substance: SECUKINUMAB
     Dosage: 150 MG, ONCE/SINGLE (PREFILLED PEN PER APPLICATION)
     Route: 065
     Dates: start: 20170413
  22. COSENTYX [Suspect]
     Active Substance: SECUKINUMAB
     Dosage: 150 MG, PER APPLICATION
     Route: 065
     Dates: start: 20170511
  23. COSENTYX [Suspect]
     Active Substance: SECUKINUMAB
     Dosage: 150 MG, PER APPLICATION
     Route: 065
     Dates: start: 20170706
  24. IBUPROFEN. [Concomitant]
     Active Substance: IBUPROFEN
     Indication: NEURODEGENERATIVE DISORDER
     Dosage: UNK UNK, TID
     Route: 048
     Dates: start: 201308, end: 201704

REACTIONS (2)
  - Respiratory tract infection [Recovered/Resolved]
  - Pyrexia [Recovered/Resolved]

NARRATIVE: CASE EVENT DATE: 20180208
